FAERS Safety Report 9246501 (Version 1)
Quarter: 2013Q2

REPORT INFORMATION
  Report Type: Report from Study
  Country: US (occurrence: US)
  Receive Date: 20130422
  Receipt Date: 20130422
  Transmission Date: 20140414
  Serious: No
  Sender: FDA-Public Use
  Company Number: US-ABBOTT-13P-163-1047716-00

PATIENT
  Sex: 0

DRUGS (1)
  1. LUPRON DEPOT-PED [Suspect]
     Indication: PRECOCIOUS PUBERTY
     Dosage: 15 MG EVERY MONTH
     Route: 030
     Dates: start: 20130111

REACTIONS (1)
  - Abdominal pain upper [Unknown]
